FAERS Safety Report 16098947 (Version 1)
Quarter: 2019Q1

REPORT INFORMATION
  Report Type: Spontaneous
  Country: US (occurrence: US)
  Receive Date: 20190321
  Receipt Date: 20190321
  Transmission Date: 20190418
  Serious: No
  Sender: FDA-Public Use
  Company Number: US-PFIZER INC-2019115906

PATIENT
  Age: 56 Year
  Sex: Male
  Weight: 58.96 kg

DRUGS (5)
  1. RANITIDINE. [Concomitant]
     Active Substance: RANITIDINE
     Indication: FLATULENCE
     Dosage: 300 MG, 2X/DAY (ONCE IN MORNING AND ONCE AT NIGHT)
     Route: 048
     Dates: start: 2009
  2. CYCLOBENZAPRINE. [Concomitant]
     Active Substance: CYCLOBENZAPRINE
     Indication: NERVE COMPRESSION
     Dosage: 10 MG, 2X/DAY (1 IN AM AND 1 IN PM)
  3. VIAGRA [Suspect]
     Active Substance: SILDENAFIL CITRATE
     Indication: NERVE COMPRESSION
     Dosage: 50 MG, AS NEEDED
     Route: 048
     Dates: start: 201803
  4. CYCLOBENZAPRINE. [Concomitant]
     Active Substance: CYCLOBENZAPRINE
     Indication: SPINAL COLUMN STENOSIS
  5. VIAGRA [Suspect]
     Active Substance: SILDENAFIL CITRATE
     Indication: SPINAL COLUMN STENOSIS

REACTIONS (1)
  - Drug ineffective for unapproved indication [Not Recovered/Not Resolved]
